FAERS Safety Report 4806289-9 (Version None)
Quarter: 2005Q4

REPORT INFORMATION
  Report Type: 
  Country: None (occurrence: None)
  Receive Date: 20051019
  Receipt Date: 20051005
  Transmission Date: 20060501
  Serious: Yes (Hospitalization)
  Sender: FDA-Public Use
  Company Number: USA0509108083

PATIENT
  Age: 50 Year
  Sex: Female

DRUGS (2)
  1. ALIMTA [Suspect]
     Indication: NON-SMALL CELL LUNG CANCER
     Dates: start: 20050601
  2. GEMZAR [Suspect]
     Indication: NON-SMALL CELL LUNG CANCER
     Dosage: 750 MG/M2
     Dates: start: 20050901

REACTIONS (4)
  - ABDOMINAL PAIN [None]
  - MUCOSAL INFLAMMATION [None]
  - RENAL IMPAIRMENT [None]
  - STOMATITIS [None]
